FAERS Safety Report 6285953-1 (Version None)
Quarter: 2009Q3

REPORT INFORMATION
  Report Type: 
  Country: None (occurrence: None)
  Receive Date: 20090728
  Receipt Date: 20090716
  Transmission Date: 20100115
  Serious: Yes (Other)
  Sender: FDA-Public Use
  Company Number: US-JNJFOC-20090706182

PATIENT
  Sex: Female
  Weight: 90.72 kg

DRUGS (3)
  1. TYLENOL [Suspect]
  2. TYLENOL [Suspect]
     Indication: ARTHRALGIA
  3. MOBIC [Concomitant]
     Indication: ARTHRITIS

REACTIONS (4)
  - DRUG INEFFECTIVE [None]
  - GASTRIC DISORDER [None]
  - HYPERTENSION [None]
  - INSOMNIA [None]
